FAERS Safety Report 8549306-5 (Version None)
Quarter: 2012Q3

REPORT INFORMATION
  Report Type: 
  Country: None (occurrence: None)
  Receive Date: 20120730
  Receipt Date: 20120716
  Transmission Date: 20120928
  Serious: Yes (Congenital Anomaly)
  Sender: FDA-Public Use
  Company Number: DE-MYLANLABS-2012S1014360

PATIENT
  Age: 0 Year
  Sex: Male
  Weight: 4.05 kg

DRUGS (2)
  1. FOLIO [Concomitant]
     Dosage: 8 - 40.6 GW
     Route: 064
  2. RISPERIDONE [Suspect]
     Route: 064
     Dates: start: 20110621, end: 20120402

REACTIONS (2)
  - HAEMANGIOMA [None]
  - MATERNAL EXPOSURE DURING PREGNANCY [None]
